FAERS Safety Report 15950892 (Version 3)
Quarter: 2019Q3

REPORT INFORMATION
  Report Type: Spontaneous
  Country: US (occurrence: US)
  Receive Date: 20190211
  Receipt Date: 20190829
  Transmission Date: 20191004
  Serious: Yes (Other)
  Sender: FDA-Public Use
  Company Number: US-MYLANLABS-2019M1010739

PATIENT
  Age: 73 Year
  Sex: Female
  Weight: 73 kg

DRUGS (3)
  1. VITAMINS                           /00067501/ [Concomitant]
     Active Substance: VITAMINS
     Indication: BLOOD CHOLESTEROL ABNORMAL
     Dosage: UNK
  2. ACITRETIN CAPSULES USP [Suspect]
     Active Substance: ACITRETIN
     Indication: SKIN CANCER
     Dosage: 1 DOSAGE FORM, QOD,FOR A WEEK, (THREE TABLETS)
     Route: 048
  3. PAXIL [Concomitant]
     Active Substance: PAROXETINE HYDROCHLORIDE
     Indication: ANXIETY
     Dosage: UNK

REACTIONS (8)
  - Alopecia [Unknown]
  - Pruritus [Unknown]
  - Squamous cell carcinoma of skin [Recovering/Resolving]
  - Dizziness [Unknown]
  - Fall [Unknown]
  - Off label use [Not Recovered/Not Resolved]
  - Blood cholesterol increased [Unknown]
  - Dry skin [Unknown]

NARRATIVE: CASE EVENT DATE: 20190129
